FAERS Safety Report 6265673-X (Version None)
Quarter: 2009Q3

REPORT INFORMATION
  Report Type: 
  Country: None (occurrence: None)
  Receive Date: 20090709
  Receipt Date: 20090709
  Transmission Date: 20100115
  Serious: Yes (Disabling, Other)
  Sender: FDA-Public Use
  Company Number: None

PATIENT
  Age: 49 Year
  Sex: Female
  Weight: 86.1834 kg

DRUGS (2)
  1. NUVIGIL [Suspect]
     Indication: SLEEP DISORDER
     Dosage: ONE PER DAY PO
     Route: 048
     Dates: start: 20090624, end: 20090704
  2. NUVIGIL [Suspect]
     Indication: SLEEP DISORDER
     Dosage: ONE PER DAY PO
     Route: 048
     Dates: start: 20090704, end: 20090706

REACTIONS (3)
  - DYSTONIA [None]
  - OEDEMA PERIPHERAL [None]
  - TIC [None]
